FAERS Safety Report 12342889 (Version 14)
Quarter: 2019Q1

REPORT INFORMATION
  Report Type: Spontaneous
  Country: FR (occurrence: FR)
  Receive Date: 20160506
  Receipt Date: 20190314
  Transmission Date: 20190417
  Serious: Yes (Hospitalization, Other)
  Sender: FDA-Public Use
  Company Number: FR-BIOGEN-2016BI00232831

PATIENT
  Age: 25 Year
  Sex: Female

DRUGS (11)
  1. TAMSULOSIN (JOSIR) [Concomitant]
     Indication: SECONDARY PROGRESSIVE MULTIPLE SCLEROSIS
     Route: 050
  2. FAMPYRA [Suspect]
     Active Substance: DALFAMPRIDINE
     Route: 050
  3. FAMPYRA [Suspect]
     Active Substance: DALFAMPRIDINE
     Route: 050
     Dates: start: 20130524, end: 20160516
  4. TYSABRI [Suspect]
     Active Substance: NATALIZUMAB
     Route: 050
  5. BACLOFEN. [Interacting]
     Active Substance: BACLOFEN
     Indication: MUSCLE SPASTICITY
     Route: 050
     Dates: start: 2008
  6. TAMSULOSIN (JOSIR) [Concomitant]
     Route: 050
  7. TYSABRI [Suspect]
     Active Substance: NATALIZUMAB
     Indication: MULTIPLE SCLEROSIS
     Route: 050
     Dates: start: 2008
  8. FAMPYRA [Suspect]
     Active Substance: DALFAMPRIDINE
     Indication: GAIT DISTURBANCE
     Route: 050
     Dates: start: 20130524, end: 20160316
  9. FAMPYRA [Suspect]
     Active Substance: DALFAMPRIDINE
     Route: 050
     Dates: start: 201306
  10. FAMPYRA [Suspect]
     Active Substance: DALFAMPRIDINE
     Route: 050
  11. BACLOFEN. [Interacting]
     Active Substance: BACLOFEN
     Dosage: TAPERED DOWN
     Route: 050

REACTIONS (4)
  - Drug interaction [Unknown]
  - Myoclonus [Recovered/Resolved]
  - Status epilepticus [Recovered/Resolved]
  - Generalised tonic-clonic seizure [Recovered/Resolved]

NARRATIVE: CASE EVENT DATE: 20160316
